FAERS Safety Report 9580224 (Version 1)
Quarter: 2013Q3

REPORT INFORMATION
  Report Type: Spontaneous
  Country: US (occurrence: None)
  Receive Date: 20130916
  Receipt Date: 20130916
  Transmission Date: 20140515
  Serious: Yes (Other)
  Sender: FDA-Public Use
  Company Number: JPI-P-029937

PATIENT
  Age: 57 Year
  Sex: Male

DRUGS (2)
  1. XYREM [Suspect]
     Indication: NARCOLEPSY
     Dosage: 4.5 GM (2.5 GM,  2 IN 1 D), ORAL
     Route: 048
     Dates: start: 20121114
  2. XYREM [Suspect]
     Indication: SOMNOLENCE
     Dosage: 4.5 GM (2.5 GM,  2 IN 1 D), ORAL
     Route: 048
     Dates: start: 20121114

REACTIONS (7)
  - Hypersensitivity [None]
  - Dyspnoea [None]
  - Respiratory tract oedema [None]
  - Swelling face [None]
  - Lip swelling [None]
  - Erythema [None]
  - Cheilitis [None]
